FAERS Safety Report 7949246-6 (Version None)
Quarter: 2011Q4

REPORT INFORMATION
  Report Type: 
  Country: None (occurrence: None)
  Receive Date: 20111125
  Receipt Date: 20111117
  Transmission Date: 20120403
  Serious: Yes (Other)
  Sender: FDA-Public Use
  Company Number: AUR-APL-2011-05880

PATIENT
  Age: 24 Year
  Sex: Female

DRUGS (3)
  1. VALACYCLOVIR [Concomitant]
  2. CETIRIZINE [Suspect]
     Indication: PRODUCT USED FOR UNKNOWN INDICATION
     Dosage: (10 MG,1 D)
  3. MEDROXYPROGESTERONE (MEDROXYPROGETERONE) [Concomitant]

REACTIONS (8)
  - LACERATION [None]
  - DYSTONIA [None]
  - GRIMACING [None]
  - GAIT DISTURBANCE [None]
  - COORDINATION ABNORMAL [None]
  - DYSARTHRIA [None]
  - ALCOHOL POISONING [None]
  - DYSKINESIA [None]
